FAERS Safety Report 11920232 (Version 3)
Quarter: 2016Q2

REPORT INFORMATION
  Report Type: Spontaneous
  Country: US (occurrence: US)
  Receive Date: 20160115
  Receipt Date: 20160414
  Transmission Date: 20160815
  Serious: No
  Sender: FDA-Public Use
  Company Number: US-009507513-1601USA004519

PATIENT

DRUGS (1)
  1. NEXPLANON [Suspect]
     Active Substance: ETONOGESTREL
     Dosage: 68 MG, EVERY THREE YEARS
     Route: 059

REACTIONS (3)
  - Device deployment issue [Recovered/Resolved]
  - No adverse event [Unknown]
  - Complication of device removal [Recovered/Resolved]
